FAERS Safety Report 13358647 (Version 1)
Quarter: 2017Q1

REPORT INFORMATION
  Report Type: Report from Study
  Country: US (occurrence: US)
  Receive Date: 20170322
  Receipt Date: 20170322
  Transmission Date: 20170429
  Serious: Yes (Hospitalization, Other)
  Sender: FDA-Public Use
  Company Number: US-AMGEN-USASL2017041299

PATIENT
  Age: 68 Year
  Sex: Male

DRUGS (1)
  1. REPATHA [Suspect]
     Active Substance: EVOLOCUMAB
     Indication: PRODUCT USED FOR UNKNOWN INDICATION
     Dosage: UNK
     Route: 065
     Dates: end: 201612

REACTIONS (9)
  - Abasia [Unknown]
  - Hospitalisation [Recovered/Resolved]
  - Adverse event [Unknown]
  - Influenza [Unknown]
  - Cardiac failure congestive [Unknown]
  - Pneumonia [Unknown]
  - Fluid retention [Unknown]
  - Swelling [Unknown]
  - Weight decreased [Unknown]
